FAERS Safety Report 10047555 (Version 3)
Quarter: 2014Q4

REPORT INFORMATION
  Report Type: Spontaneous
  Country: US (occurrence: None)
  Receive Date: 20140327
  Receipt Date: 20141118
  Transmission Date: 20150528
  Serious: Yes (Death, Life-Threatening, Hospitalization, Disabling, Other)
  Sender: FDA-Public Use
  Company Number: 1713747-2014-99930

PATIENT
  Age: 75 Year
  Sex: Female
  Weight: 124 kg

DRUGS (7)
  1. NATURALYTE [Concomitant]
     Active Substance: ACETIC ACID\SODIUM ACETATE
  2. 0.9% SODIUM CHLORIDE [Suspect]
     Active Substance: SODIUM CHLORIDE
     Indication: CHRONIC KIDNEY DISEASE
     Dosage: HEMODIALYSIS
     Dates: start: 20100111
  3. COMBISET [Concomitant]
  4. GRANUFLO [Concomitant]
     Active Substance: ACETIC ACID\SODIUM ACETATE
  5. FMC 2008K [Concomitant]
  6. SALINE [Concomitant]
     Active Substance: SODIUM CHLORIDE
  7. DIALYZER [Concomitant]

REACTIONS (8)
  - Dialysis related complication [None]
  - Feeding disorder [None]
  - Cardio-respiratory arrest [None]
  - Hypoglycaemia [None]
  - Cardiovascular disorder [None]
  - Hypoxia [None]
  - Encephalopathy [None]
  - Status epilepticus [None]

NARRATIVE: CASE EVENT DATE: 20100111
